FAERS Safety Report 9886601 (Version 2)
Quarter: 2014Q3

REPORT INFORMATION
  Report Type: Spontaneous
  Country: US (occurrence: US)
  Receive Date: 20140210
  Receipt Date: 20140813
  Transmission Date: 20150326
  Serious: Yes (Other)
  Sender: FDA-Public Use
  Company Number: US-009507513-1402USA004231

PATIENT
  Sex: Female

DRUGS (2)
  1. NUVARING [Suspect]
     Active Substance: ETHINYL ESTRADIOL\ETONOGESTREL
     Indication: CONTRACEPTION
     Dosage: UNK
     Route: 067
     Dates: start: 200904, end: 200908
  2. ASPIRIN. [Concomitant]
     Active Substance: ASPIRIN
     Indication: THROMBOPHLEBITIS SUPERFICIAL
     Dosage: UNK
     Dates: start: 200901

REACTIONS (4)
  - Pain in extremity [Unknown]
  - Thrombophlebitis superficial [Unknown]
  - Immune thrombocytopenic purpura [Unknown]
  - Splenectomy [Unknown]

NARRATIVE: CASE EVENT DATE: 20090817
